FAERS Safety Report 12466730 (Version 1)
Quarter: 2016Q2

REPORT INFORMATION
  Report Type: Spontaneous
  Country: US (occurrence: None)
  Receive Date: 20160614
  Receipt Date: 20160614
  Transmission Date: 20160815
  Serious: Yes (Death)
  Sender: FDA-Public Use
  Company Number: None

PATIENT
  Age: 23 Year
  Sex: Male

DRUGS (2)
  1. SILDENAFIL 20MG AMNEAL PHARMACEUTICALS [Suspect]
     Active Substance: SILDENAFIL
     Indication: PULMONARY ARTERIAL HYPERTENSION
     Route: 048
     Dates: start: 201212, end: 201605
  2. TOBRAMYCIN NEB 300MG/5ML SOL SANDOZ [Suspect]
     Active Substance: TOBRAMYCIN
     Indication: PULMONARY ARTERIAL HYPERTENSION
     Dosage: 300MG/5ML 2 TIMES A DAY NEBULIZATION
     Dates: start: 201605

REACTIONS (1)
  - Death [None]

NARRATIVE: CASE EVENT DATE: 20160610
